FAERS Safety Report 8609314-2 (Version None)
Quarter: 2012Q3

REPORT INFORMATION
  Report Type: 
  Country: None (occurrence: None)
  Receive Date: 20120821
  Receipt Date: 20120816
  Transmission Date: 20120928
  Serious: Yes (Hospitalization, Other)
  Sender: FDA-Public Use
  Company Number: PHEH2012US010890

PATIENT
  Sex: Male
  Weight: 120.18 kg

DRUGS (2)
  1. DEPO-TESTOSTERONE [Concomitant]
     Dosage: 400 MG, QW2
     Route: 030
     Dates: start: 20111220
  2. TEKTURNA [Suspect]
     Indication: HYPERTENSION
     Dosage: 300 MG, QD
     Route: 048
     Dates: start: 20100101, end: 20120524

REACTIONS (1)
  - PANCREATITIS ACUTE [None]
